FAERS Safety Report 14816698 (Version 1)
Quarter: 2018Q2

REPORT INFORMATION
  Report Type: Report from Study
  Country: US (occurrence: US)
  Receive Date: 20180426
  Receipt Date: 20180426
  Transmission Date: 20180711
  Serious: Yes (Hospitalization)
  Sender: FDA-Public Use
  Company Number: US-ACTELION-A-US2018-170572

PATIENT
  Age: 79 Year
  Sex: Female

DRUGS (2)
  1. ADCIRCA [Concomitant]
     Active Substance: TADALAFIL
     Dosage: 10 MG, QD
     Dates: start: 201804
  2. OPSUMIT [Suspect]
     Active Substance: MACITENTAN
     Indication: PULMONARY HYPERTENSION
     Dosage: 10 MG, QD
     Route: 048
     Dates: start: 201804, end: 20180412

REACTIONS (10)
  - Chest pain [Recovering/Resolving]
  - Dizziness [Recovering/Resolving]
  - Peripheral swelling [Recovered/Resolved]
  - Feeling abnormal [Recovering/Resolving]
  - Oedema [Recovered/Resolved]
  - Decreased activity [Recovering/Resolving]
  - Dyspnoea [Recovering/Resolving]
  - Pulmonary hypertension [Recovering/Resolving]
  - Confusional state [Unknown]
  - Accidental exposure to product [Unknown]

NARRATIVE: CASE EVENT DATE: 201804
